FAERS Safety Report 16919704 (Version 1)
Quarter: 2019Q4

REPORT INFORMATION
  Report Type: Spontaneous
  Country: US (occurrence: US)
  Receive Date: 20191015
  Receipt Date: 20191015
  Transmission Date: 20200122
  Serious: Yes (Other)
  Sender: FDA-Public Use
  Company Number: US-PURACAP PHARMACEUTICAL LLC-2019EPC00283

PATIENT
  Age: 12 Month
  Sex: Male

DRUGS (2)
  1. DOXYCYCLINE HYCLATE. [Suspect]
     Active Substance: DOXYCYCLINE HYCLATE
     Indication: SCLEROTHERAPY
  2. DOXYCYCLINE HYCLATE. [Suspect]
     Active Substance: DOXYCYCLINE HYCLATE
     Indication: VENOLYMPHATIC MALFORMATION
     Dosage: 10 MG/ML RANGING FROM 230 TO 300 MG EACH DAY, WITH A TOTAL DOSE OF 760 MG
     Route: 042

REACTIONS (3)
  - Dysphagia [Recovered/Resolved]
  - Aspiration [Recovered/Resolved]
  - Nerve injury [Recovered/Resolved]
